FAERS Safety Report 4336816-X (Version None)
Quarter: 2004Q2

REPORT INFORMATION
  Report Type: 
  Country: None (occurrence: None)
  Receive Date: 20040407
  Receipt Date: 20040323
  Transmission Date: 20050107
  Serious: Yes (Disabling)
  Sender: FDA-Public Use
  Company Number: A03200400892

PATIENT
  Sex: Female

DRUGS (5)
  1. AMBIEN [Suspect]
     Indication: INSOMNIA
     Dosage: ORAL
     Route: 048
     Dates: start: 20000323
  2. OXYCONTIN [Suspect]
     Indication: ARTHRALGIA
     Dosage: ORAL
     Route: 048
     Dates: start: 20000110
  3. TIZANADINE HYDROCHLORIDE [Concomitant]
  4. ZALEPLON [Concomitant]
  5. TEMAZEPAM [Concomitant]

REACTIONS (4)
  - AMNESIA [None]
  - DRUG INTERACTION [None]
  - MANIA [None]
  - SCHIZOPHRENIA [None]
